FAERS Safety Report 23846927 (Version 2)
Quarter: 2025Q2

REPORT INFORMATION
  Report Type: Spontaneous
  Country: ZA (occurrence: ZA)
  Receive Date: 20240513
  Receipt Date: 20250626
  Transmission Date: 20250717
  Serious: Yes (Other)
  Sender: AMGEN
  Company Number: ZA-PFIZER INC-PV202400057912

PATIENT
  Age: 25 Year
  Sex: Female

DRUGS (1)
  1. ENBREL [Suspect]
     Active Substance: ETANERCEPT
     Indication: Rheumatoid arthritis
     Dosage: 50 MG, WEEKLY
     Route: 065
     Dates: start: 202311

REACTIONS (1)
  - Liver function test abnormal [Recovered/Resolved]

NARRATIVE: CASE EVENT DATE: 20240131
